FAERS Safety Report 6937718-2 (Version None)
Quarter: 2010Q3

REPORT INFORMATION
  Report Type: 
  Country: None (occurrence: None)
  Receive Date: 20100820
  Receipt Date: 20100820
  Transmission Date: 20110219
  Serious: No
  Sender: FDA-Public Use
  Company Number: None

PATIENT
  Age: 19 Year
  Sex: Female
  Weight: 58.9676 kg

DRUGS (1)
  1. UNISOM STRONG CHATTEM, INC. [Suspect]
     Indication: INSOMNIA
     Dosage: 25 MG DOXYLAMINE
     Dates: start: 20100717, end: 20100819

REACTIONS (4)
  - ABNORMAL DREAMS [None]
  - HALLUCINATIONS, MIXED [None]
  - NIGHTMARE [None]
  - SOMNOLENCE [None]
